FAERS Safety Report 7383693-9 (Version None)
Quarter: 2011Q1

REPORT INFORMATION
  Report Type: 
  Country: None (occurrence: None)
  Receive Date: 20110330
  Receipt Date: 20110323
  Transmission Date: 20110831
  Serious: Yes (Hospitalization)
  Sender: FDA-Public Use
  Company Number: US-JNJFOC-20110309901

PATIENT
  Sex: Female

DRUGS (1)
  1. LEVAQUIN [Suspect]
     Indication: ANTI-INFECTIVE THERAPY
     Dosage: 150 ML/OVER 1.5 HOURS
     Route: 042

REACTIONS (3)
  - AGITATION [None]
  - INFUSION SITE IRRITATION [None]
  - INJECTION SITE EXTRAVASATION [None]
